FAERS Safety Report 5515682-0 (Version None)
Quarter: 2007Q4

REPORT INFORMATION
  Report Type: 
  Country: None (occurrence: None)
  Receive Date: 20071113
  Receipt Date: 20070821
  Transmission Date: 20080405
  Serious: No
  Sender: FDA-Public Use
  Company Number: A0673447A

PATIENT
  Age: 87 Year
  Sex: Male

DRUGS (6)
  1. COREG [Suspect]
     Indication: HYPERTENSION
     Dosage: 25MG TWICE PER DAY
     Route: 048
  2. MICARDIS [Concomitant]
  3. AMBIEN [Concomitant]
  4. NEXIUM [Concomitant]
  5. TERAZOSIN HCL [Concomitant]
  6. SYNTHROID [Concomitant]

REACTIONS (1)
  - FATIGUE [None]
